FAERS Safety Report 23902755 (Version 2)
Quarter: 2024Q2

REPORT INFORMATION
  Report Type: Other
  Country: RO (occurrence: RO)
  Receive Date: 20240527
  Receipt Date: 20240606
  Transmission Date: 20240716
  Serious: Yes (Other)
  Sender: FDA-Public Use
  Company Number: None

PATIENT
  Age: 32 Year
  Sex: Female

DRUGS (3)
  1. IBUPROFEN [Suspect]
     Active Substance: IBUPROFEN
     Indication: Product used for unknown indication
     Dosage: UNK
     Route: 065
  2. ETORICOXIB [Suspect]
     Active Substance: ETORICOXIB
     Indication: Dysmenorrhoea
     Dosage: UNK (FILM-COATED TABLET)
     Route: 065
  3. KETOPROFEN [Suspect]
     Active Substance: KETOPROFEN
     Indication: Product used for unknown indication
     Dosage: UNK
     Route: 065

REACTIONS (9)
  - Oral pruritus [Recovered/Resolved]
  - Hypersensitivity [Recovered/Resolved]
  - Angioedema [Recovered/Resolved]
  - Skin lesion [Recovered/Resolved]
  - Skin plaque [Recovered/Resolved]
  - Skin hyperpigmentation [Recovered/Resolved]
  - Erythema [Recovered/Resolved]
  - Rash [Recovered/Resolved]
  - Fixed eruption [Recovered/Resolved]
